FAERS Safety Report 18996280 (Version 2)
Quarter: 2021Q2

REPORT INFORMATION
  Report Type: Report from Study
  Country: ES (occurrence: ES)
  Receive Date: 20210311
  Receipt Date: 20210422
  Transmission Date: 20210717
  Serious: Yes (Other)
  Sender: FDA-Public Use
  Company Number: ES-ASTELLAS-2020US006763

PATIENT
  Age: 77 Year
  Sex: Male

DRUGS (3)
  1. ENZALUTAMIDE [Suspect]
     Active Substance: ENZALUTAMIDE
     Indication: HORMONE-REFRACTORY PROSTATE CANCER
     Dosage: 160 MG, UNKNOWN FREQ. (FULL DOSE)
     Route: 065
     Dates: start: 20190514, end: 20190925
  2. ENZALUTAMIDE [Suspect]
     Active Substance: ENZALUTAMIDE
     Dosage: 80 MG, UNKNOWN FREQ. (50 %)
     Route: 065
     Dates: start: 20191030
  3. ENZALUTAMIDE [Suspect]
     Active Substance: ENZALUTAMIDE
     Dosage: 120 MG, UNKNOWN FREQ. (75 %)
     Route: 065

REACTIONS (4)
  - Fall [Unknown]
  - Haematoma [Unknown]
  - Hypertensive crisis [Recovered/Resolved]
  - Head injury [Unknown]

NARRATIVE: CASE EVENT DATE: 20190904
